FAERS Safety Report 11234797 (Version 1)
Quarter: 2015Q3

REPORT INFORMATION
  Report Type: Spontaneous
  Country: FR (occurrence: FR)
  Receive Date: 20150702
  Receipt Date: 20150702
  Transmission Date: 20151125
  Serious: Yes (Hospitalization)
  Sender: FDA-Public Use
  Company Number: FR-GLAXOSMITHKLINE-FR2015GSK093068

PATIENT
  Age: 59 Year
  Sex: Female

DRUGS (7)
  1. ZELITREX [Suspect]
     Active Substance: VALACYCLOVIR HYDROCHLORIDE
     Indication: PRODUCT USED FOR UNKNOWN INDICATION
     Dosage: 500 MG, BID
     Route: 048
  2. ESOMEPRAZOLE [Concomitant]
     Active Substance: ESOMEPRAZOLE
     Dosage: 20 MG, Z
     Route: 048
  3. LEVOTHYROX [Concomitant]
     Active Substance: LEVOTHYROXINE
     Dosage: 100 UNK, 1D
     Route: 048
     Dates: start: 2006
  4. HYDROCORTISONE. [Concomitant]
     Active Substance: HYDROCORTISONE
     Indication: POLYCHONDRITIS
     Dosage: 10 MG, 1D
     Route: 048
     Dates: start: 2008
  5. DAFALGAN CODEINE [Concomitant]
     Active Substance: ACETAMINOPHEN\CODEINE PHOSPHATE
     Indication: POLYCHONDRITIS
     Dosage: 1 UNK, 1D
     Route: 048
  6. CEBUTID [Concomitant]
     Active Substance: FLURBIPROFEN
     Indication: POLYCHONDRITIS
     Dosage: 200 MG, Z
     Route: 048
  7. ROACTEMRA [Suspect]
     Active Substance: TOCILIZUMAB
     Indication: POLYCHONDRITIS
     Dosage: 8 MG/KG, Z
     Route: 042
     Dates: start: 201404

REACTIONS (6)
  - Localised oedema [Recovering/Resolving]
  - Aphonia [Recovered/Resolved]
  - Vertigo [Recovered/Resolved]
  - Dyspnoea [Recovered/Resolved]
  - Hearing impaired [Recovered/Resolved]
  - Cough [Recovered/Resolved]

NARRATIVE: CASE EVENT DATE: 20150406
